FAERS Safety Report 4905334-X (Version None)
Quarter: 2006Q1

REPORT INFORMATION
  Report Type: 
  Country: None (occurrence: None)
  Receive Date: 20060207
  Receipt Date: 20060207
  Transmission Date: 20060701
  Serious: Yes (Hospitalization)
  Sender: FDA-Public Use
  Company Number: None

PATIENT
  Age: 36 Year
  Sex: Male
  Weight: 60.1 kg

DRUGS (1)
  1. PROGRAF [Suspect]
     Indication: APLASTIC ANAEMIA
     Dosage: 2 MG    Q 24 HR    IV
     Route: 042
     Dates: start: 20051228, end: 20060126

REACTIONS (1)
  - NEPHROPATHY [None]
